FAERS Safety Report 7019542-8 (Version None)
Quarter: 2010Q3

REPORT INFORMATION
  Report Type: 
  Country: None (occurrence: None)
  Receive Date: 20100923
  Receipt Date: 20100914
  Transmission Date: 20110219
  Serious: Yes (Other)
  Sender: FDA-Public Use
  Company Number: 2010US002913

PATIENT
  Sex: Female
  Weight: 78 kg

DRUGS (5)
  1. VESICARE [Suspect]
     Indication: HYPERTONIC BLADDER
     Dosage: 5 MG, UID/QD, ORAL
     Route: 048
     Dates: start: 20100514, end: 20100521
  2. VESICARE [Suspect]
     Indication: URINARY INCONTINENCE
     Dosage: 5 MG, UID/QD, ORAL
     Route: 048
     Dates: start: 20100514, end: 20100521
  3. SYNTHROID (LEVOTHYROXIEN SODIUM) [Concomitant]
  4. VERAPAMIL [Concomitant]
  5. ZANAFLEX [Concomitant]

REACTIONS (2)
  - FLUID RETENTION [None]
  - RENAL FAILURE [None]
